FAERS Safety Report 9617514 (Version 3)
Quarter: 2013Q4

REPORT INFORMATION
  Report Type: Report from Study
  Country: HU (occurrence: HU)
  Receive Date: 20131011
  Receipt Date: 20131107
  Transmission Date: 20140711
  Serious: Yes (Hospitalization)
  Sender: FDA-Public Use
  Company Number: HU-PFIZER INC-2013282949

PATIENT
  Age: 26 Year
  Sex: Male
  Weight: 65.5 kg

DRUGS (3)
  1. TOFACITINIB CITRATE [Suspect]
     Indication: CROHN^S DISEASE
     Dosage: 5 MG, 2X/DAY
     Route: 048
     Dates: start: 20130704, end: 20130930
  2. PENTASA [Concomitant]
     Indication: CROHN^S DISEASE
     Dosage: 2 G, 1X/DAY
     Route: 048
     Dates: start: 20121027
  3. CONTROLOC [Concomitant]
     Indication: GASTRITIS
     Dosage: 20 MG, 2X/DAY
     Route: 048
     Dates: start: 20120721

REACTIONS (1)
  - Anal abscess [Recovered/Resolved with Sequelae]
